FAERS Safety Report 11259473 (Version 1)
Quarter: 2015Q3

REPORT INFORMATION
  Report Type: Spontaneous
  Country: US (occurrence: None)
  Receive Date: 20150709
  Receipt Date: 20150709
  Transmission Date: 20151125
  Serious: Yes (Other)
  Sender: FDA-Public Use
  Company Number: None

PATIENT
  Age: 62 Year
  Sex: Male
  Weight: 90.72 kg

DRUGS (10)
  1. TICAGRELOR [Concomitant]
     Active Substance: TICAGRELOR
  2. METROPROLOL [Concomitant]
     Active Substance: METOPROLOL
  3. FENOFIBRATE. [Concomitant]
     Active Substance: FENOFIBRATE
  4. LISINOPRIL. [Concomitant]
     Active Substance: LISINOPRIL
  5. OMEGA3FAS [Concomitant]
  6. ATORVASTATIN [Concomitant]
     Active Substance: ATORVASTATIN
  7. ASPIRIN. [Concomitant]
     Active Substance: ASPIRIN
  8. JANUMET [Concomitant]
     Active Substance: METFORMIN HYDROCHLORIDE\SITAGLIPTIN PHOSPHATE
  9. EMPAGLIFLOZIN [Suspect]
     Active Substance: EMPAGLIFLOZIN
     Indication: DIABETES MELLITUS INADEQUATE CONTROL
  10. EMAGLIFLOZINE [Concomitant]

REACTIONS (4)
  - Diarrhoea [None]
  - Metabolic acidosis [None]
  - Ketoacidosis [None]
  - Fatigue [None]

NARRATIVE: CASE EVENT DATE: 20150627
